FAERS Safety Report 22080009 (Version 2)
Quarter: 2023Q2

REPORT INFORMATION
  Report Type: Report from Study
  Country: US (occurrence: US)
  Receive Date: 20230309
  Receipt Date: 20230612
  Transmission Date: 20230722
  Serious: Yes (Life-Threatening, Hospitalization, Other)
  Sender: FDA-Public Use
  Company Number: US-ABBVIE-4333350

PATIENT

DRUGS (1)
  1. RINVOQ [Suspect]
     Active Substance: UPADACITINIB
     Indication: Colitis ulcerative
     Dosage: FORM STRENGTH: 30 MG
     Route: 048
     Dates: end: 2023

REACTIONS (5)
  - Gastric perforation [Unknown]
  - Hypersensitivity [Recovered/Resolved]
  - Urticaria [Recovered/Resolved]
  - Colitis ulcerative [Unknown]
  - Perforated ulcer [Unknown]
